FAERS Safety Report 8467493 (Version 4)
Quarter: 2012Q4

REPORT INFORMATION
  Report Type: 
  Country: JP (occurrence: JP)
  Receive Date: 20120320
  Receipt Date: 20121001
  Transmission Date: 20130627
  Serious: Yes (Hospitalization)
  Sender: FDA-Public Use
  Company Number: PHHY2012JP022465

PATIENT
  Sex: Female

DRUGS (6)
  1. RITALIN [Suspect]
     Indication: NARCOLEPSY
     Dosage: 20 mg, one tablet daily
     Route: 048
     Dates: start: 2007, end: 201201
  2. RITALIN [Suspect]
     Dosage: 10 mg, one tablet daily
     Dates: start: 201201, end: 20120116
  3. MYSLEE [Concomitant]
     Route: 048
  4. THYROID PREPARATIONS [Concomitant]
     Route: 048
  5. PARATHYROID HORMONES [Concomitant]
     Route: 048
  6. MERCAZOLE [Concomitant]
     Indication: HYPERTHYROIDISM

REACTIONS (3)
  - Fall [Recovered/Resolved]
  - Dementia [Not Recovered/Not Resolved]
  - Memory impairment [Not Recovered/Not Resolved]
